FAERS Safety Report 4573024-1 (Version None)
Quarter: 2005Q1

REPORT INFORMATION
  Report Type: 
  Country: None (occurrence: None)
  Receive Date: 20050204
  Receipt Date: 20050127
  Transmission Date: 20050727
  Serious: Yes (Other)
  Sender: FDA-Public Use
  Company Number: TPG2005A00036

PATIENT
  Age: 80 Year
  Sex: Female

DRUGS (4)
  1. ACTOS [Suspect]
     Indication: DIABETES MELLITUS
     Dosage: 30 UP TO 45 MG, PER ORAL
     Route: 048
     Dates: start: 20040101, end: 20050101
  2. RAMIPRIL [Concomitant]
  3. CARVEDILOL [Concomitant]
  4. AMLODIPINE [Concomitant]

REACTIONS (1)
  - PLEURAL EFFUSION [None]
